FAERS Safety Report 15111669 (Version 1)
Quarter: 2018Q3

REPORT INFORMATION
  Report Type: Spontaneous
  Country: AT (occurrence: AT)
  Receive Date: 20180705
  Receipt Date: 20180705
  Transmission Date: 20181010
  Serious: Yes (Other)
  Sender: FDA-Public Use
  Company Number: AT-PFIZER INC-2018042427

PATIENT
  Age: 59 Year
  Sex: Female

DRUGS (1)
  1. XALKORI [Suspect]
     Active Substance: CRIZOTINIB
     Indication: NON-SMALL CELL LUNG CANCER
     Dosage: 200 MG, TWICE DAILY
     Dates: start: 201703

REACTIONS (6)
  - Spinal fracture [Unknown]
  - Neoplasm progression [Unknown]
  - Oedema [Unknown]
  - Nausea [Unknown]
  - Vomiting [Unknown]
  - Pulmonary embolism [Unknown]

NARRATIVE: CASE EVENT DATE: 201703
